FAERS Safety Report 9245658 (Version 4)
Quarter: 2013Q2

REPORT INFORMATION
  Report Type: Report from Study
  Country: DE (occurrence: DE)
  Receive Date: 20130422
  Receipt Date: 20130626
  Transmission Date: 20140414
  Serious: Yes (Life-Threatening, Other)
  Sender: FDA-Public Use
  Company Number: PHHY2013DE038116

PATIENT
  Age: 40 Year
  Sex: Male
  Weight: 73 kg

DRUGS (2)
  1. GILENYA [Suspect]
     Indication: MULTIPLE SCLEROSIS
     Dosage: 0.5 MG, QD
     Route: 048
     Dates: start: 20111018, end: 20130417
  2. PHYSICAL THERAPY [Concomitant]

REACTIONS (2)
  - Malignant melanoma in situ [Unknown]
  - Dysplastic naevus [Unknown]
